FAERS Safety Report 13022004 (Version 2)
Quarter: 2017Q2

REPORT INFORMATION
  Report Type: Spontaneous
  Country: US (occurrence: US)
  Receive Date: 20161213
  Receipt Date: 20170612
  Transmission Date: 20170830
  Serious: No
  Sender: FDA-Public Use
  Company Number: US-BAYER-2016-234945

PATIENT
  Age: 68 Year
  Sex: Female
  Weight: 65.76 kg

DRUGS (9)
  1. OMEGA 3 [FISH OIL] [Concomitant]
  2. HYDROCHLOROTHIAZIDE. [Concomitant]
     Active Substance: HYDROCHLOROTHIAZIDE
  3. VALIUM [Concomitant]
     Active Substance: DIAZEPAM
  4. VITAMIN B12 [Concomitant]
     Active Substance: CYANOCOBALAMIN
  5. MOTRIN [Concomitant]
     Active Substance: IBUPROFEN
  6. BETASERON [Suspect]
     Active Substance: INTERFERON BETA-1B
     Indication: MULTIPLE SCLEROSIS
     Dosage: 0.3 MG, QOD
     Route: 058
     Dates: start: 2002
  7. MULTIVITAMIN [Concomitant]
     Active Substance: VITAMINS
  8. POTASSIUM [Concomitant]
     Active Substance: POTASSIUM
  9. CITRACAL + D [CALCIUM CITRATE,COLECALCIFEROL] [Concomitant]

REACTIONS (6)
  - Upper-airway cough syndrome [None]
  - Viral upper respiratory tract infection [None]
  - Cough [None]
  - Depression [None]
  - Dry throat [None]
  - Depressed mood [None]

NARRATIVE: CASE EVENT DATE: 20161206
